FAERS Safety Report 7768701-5 (Version None)
Quarter: 2011Q3

REPORT INFORMATION
  Report Type: 
  Country: None (occurrence: None)
  Receive Date: 20110922
  Receipt Date: 20100914
  Transmission Date: 20111222
  Serious: Yes (Hospitalization)
  Sender: FDA-Public Use
  Company Number: US-ASTRAZENECA-2007UW07762

PATIENT
  Age: 35 Year
  Sex: Female
  Weight: 94.8 kg

DRUGS (29)
  1. ZYPREXA [Concomitant]
     Indication: BIPOLAR DISORDER
     Dosage: 5-10 MG
     Route: 048
     Dates: start: 19970602, end: 19990927
  2. ULTRACET [Concomitant]
     Indication: MIGRAINE
     Route: 048
     Dates: start: 20050324
  3. PRILOSEC [Concomitant]
     Route: 048
     Dates: start: 20070209
  4. SEROQUEL [Suspect]
     Indication: BIPOLAR DISORDER
     Route: 048
     Dates: start: 19990101, end: 20050101
  5. XANAX [Concomitant]
     Dates: start: 20060101
  6. XANAX [Concomitant]
     Route: 048
     Dates: start: 20060406
  7. PREVACID [Concomitant]
     Route: 048
     Dates: start: 20020415
  8. GEODON [Suspect]
     Route: 048
     Dates: start: 20020415
  9. BENADRYL [Concomitant]
     Route: 048
     Dates: start: 19990721
  10. SINGULAIR [Concomitant]
     Route: 048
     Dates: start: 20040503
  11. ASPIRIN [Concomitant]
     Route: 048
     Dates: start: 20060312
  12. GEODON [Suspect]
     Dates: start: 20010101, end: 20060101
  13. VIOXX [Concomitant]
     Route: 048
     Dates: start: 20020316
  14. PAXIL [Concomitant]
     Route: 048
     Dates: start: 20020415
  15. CLARITIN [Concomitant]
     Indication: HYPERSENSITIVITY
     Route: 048
     Dates: start: 20020618
  16. LEXAPRO [Concomitant]
     Route: 048
     Dates: start: 20040503
  17. ACETAMINOPHEN [Concomitant]
     Route: 048
     Dates: start: 20060312
  18. TRICOR [Concomitant]
     Route: 048
     Dates: start: 20060406
  19. SEROQUEL [Suspect]
     Dosage: 25 MG TO 600 MG
     Route: 048
     Dates: start: 19990628, end: 20060209
  20. SEROQUEL [Suspect]
     Dosage: 25 MG TO 600 MG
     Route: 048
     Dates: start: 19990628, end: 20060209
  21. VALTREX [Concomitant]
     Route: 048
     Dates: start: 20020415
  22. SEROQUEL [Suspect]
     Indication: SLEEP DISORDER
     Route: 048
     Dates: start: 19990101, end: 20050101
  23. LOPRESSOR [Concomitant]
     Route: 048
     Dates: start: 20020316
  24. LORAZEPAM [Concomitant]
     Route: 048
     Dates: start: 20040927
  25. PANTOPRAZOLE [Concomitant]
     Route: 048
     Dates: start: 20060311
  26. AMBIEN [Concomitant]
     Dates: start: 20060101
  27. WELLBUTRIN [Concomitant]
     Indication: BIPOLAR DISORDER
     Dosage: 100 MG TO 400 MG BID
     Route: 048
     Dates: start: 19990721
  28. ACIPHEX [Concomitant]
     Route: 048
     Dates: start: 20040503
  29. PROTONIX [Concomitant]
     Route: 048
     Dates: start: 20041003

REACTIONS (9)
  - BLOOD CHOLESTEROL INCREASED [None]
  - DYSLIPIDAEMIA [None]
  - TYPE 2 DIABETES MELLITUS [None]
  - GLYCOSURIA [None]
  - DEPRESSION [None]
  - SUICIDAL IDEATION [None]
  - OBESITY [None]
  - HYPERLIPIDAEMIA [None]
  - WEIGHT INCREASED [None]
